FAERS Safety Report 12014874 (Version 1)
Quarter: 2016Q1

REPORT INFORMATION
  Report Type: Spontaneous
  Country: US (occurrence: US)
  Receive Date: 20160205
  Receipt Date: 20160205
  Transmission Date: 20160526
  Serious: No
  Sender: FDA-Public Use
  Company Number: US-AUROBINDO-AUR-APL-2015-04223

PATIENT
  Sex: Male

DRUGS (1)
  1. CEFDINIR ORAL SUSPENSION [Suspect]
     Active Substance: CEFDINIR
     Indication: EAR INFECTION
     Dosage: 100 MG, DAILY
     Route: 048

REACTIONS (2)
  - Urticaria [Recovered/Resolved]
  - Diarrhoea [Recovered/Resolved]
